FAERS Safety Report 9230928 (Version 1)
Quarter: 2013Q1

REPORT INFORMATION
  Report Type: Spontaneous
  Country: US (occurrence: None)
  Receive Date: 20121031
  Receipt Date: 20121031
  Transmission Date: 20140127
  Serious: No
  Sender: FDA-Public Use
  Company Number: PHEH2012US011488

PATIENT
  Sex: Female
  Weight: 47.6 kg

DRUGS (4)
  1. GILENYA [Suspect]
  2. CLONAZEPAM (CLONAEPAM) [Concomitant]
  3. ADDERALL (AMFETAMINE ASPARTATE, AMFETAMINE SULFATE, DEXAMFETAMINE SACCHARATE, DEXAMFETAMINE SULFATE) [Concomitant]
  4. VIIBRYD (VILAZODONE HYDROCHLRIDE) [Concomitant]

REACTIONS (3)
  - Blood pressure decreased [None]
  - Vertigo positional [None]
  - Dizziness [None]
